FAERS Safety Report 14008693 (Version 1)
Quarter: 2017Q3

REPORT INFORMATION
  Report Type: Spontaneous
  Country: US (occurrence: US)
  Receive Date: 20170925
  Receipt Date: 20170925
  Transmission Date: 20171128
  Serious: No
  Sender: FDA-Public Use
  Company Number: US-OREXO US, INC.-E2B_00000053

PATIENT
  Sex: Female
  Weight: 68.1 kg

DRUGS (1)
  1. ZUBSOLV [Suspect]
     Active Substance: BUPRENORPHINE HYDROCHLORIDE\NALOXONE HYDROCHLORIDE
     Indication: DRUG WITHDRAWAL SYNDROME
     Dosage: 5.7/1.4 MG, 1 AND 1/2 TABLET DAILY
     Dates: start: 20161217

REACTIONS (2)
  - Eczema [Recovered/Resolved]
  - Drug tolerance [Unknown]
